FAERS Safety Report 15075555 (Version 1)
Quarter: 2018Q2

REPORT INFORMATION
  Report Type: Report from Study
  Country: US (occurrence: US)
  Receive Date: 20180627
  Receipt Date: 20180627
  Transmission Date: 20180711
  Serious: Yes (Hospitalization, Other)
  Sender: FDA-Public Use
  Company Number: US-SAOL THERAPEUTICS-2017SAO01666

PATIENT
  Age: 72 Year
  Sex: Male
  Weight: 111.57 kg

DRUGS (23)
  1. COMPOUNDED BACLOFEN [Suspect]
     Active Substance: BACLOFEN
     Route: 037
  2. BACLOFEN. [Suspect]
     Active Substance: BACLOFEN
     Dosage: 229.98 ?G, \DAY
     Route: 037
     Dates: start: 20101104
  3. BACLOFEN. [Suspect]
     Active Substance: BACLOFEN
     Dosage: 388.18 ?G, \DAY; MAX DOSE
     Route: 037
     Dates: start: 20101104
  4. BUPIVACAINE. [Suspect]
     Active Substance: BUPIVACAINE
     Dosage: 15.527 MG, \DAY; MAX DOSE
     Route: 037
     Dates: start: 20101104
  5. LIORESAL [Suspect]
     Active Substance: BACLOFEN
     Dosage: 239.91 ?G, \DAY
     Route: 037
  6. LIORESAL [Suspect]
     Active Substance: BACLOFEN
     Dosage: 397.76 ?G, \DAY
     Route: 037
  7. DILAUDID [Suspect]
     Active Substance: HYDROMORPHONE HYDROCHLORIDE
     Dosage: 2.399 MG, \DAY
     Route: 037
     Dates: start: 20101102, end: 20101104
  8. DILAUDID [Suspect]
     Active Substance: HYDROMORPHONE HYDROCHLORIDE
     Dosage: 3.977 MG, \DAY; MAX DOSE
     Route: 037
     Dates: start: 20101102, end: 20101104
  9. BUPIVACAINE. [Suspect]
     Active Substance: BUPIVACAINE
     Dosage: 9.596 MG, \DAY
     Route: 037
     Dates: start: 20101102, end: 20101104
  10. LIORESAL [Suspect]
     Active Substance: BACLOFEN
     Dosage: 327.23 ?G, \DAY
     Route: 037
  11. CLONIDINE. [Suspect]
     Active Substance: CLONIDINE
     Dosage: 91.99 ?G, \DAY
     Route: 037
     Dates: start: 20101104
  12. BACLOFEN. [Suspect]
     Active Substance: BACLOFEN
     Dosage: 397.76 ?G, \DAY; MAX DOSE
     Route: 037
     Dates: start: 20101102, end: 20101104
  13. BUPIVACAINE. [Suspect]
     Active Substance: BUPIVACAINE
     Dosage: 15.910 MG, \DAY; MAX DOSE
     Route: 037
     Dates: start: 20101102, end: 20101104
  14. BUPIVACAINE. [Suspect]
     Active Substance: BUPIVACAINE
     Dosage: 9.199 MG, \DAY
     Route: 037
     Dates: start: 20101104
  15. CLONIDINE. [Suspect]
     Active Substance: CLONIDINE
     Dosage: 95.96 ?G, \DAY
     Route: 037
     Dates: start: 20101102, end: 20101104
  16. LIORESAL [Suspect]
     Active Substance: BACLOFEN
     Indication: MUSCLE SPASTICITY
     Dosage: 199.84 ?G, \DAY
     Route: 037
  17. LIORESAL [Suspect]
     Active Substance: BACLOFEN
     Dosage: 378.37 ?G, \DAY
     Route: 037
  18. DILAUDID [Suspect]
     Active Substance: HYDROMORPHONE HYDROCHLORIDE
     Dosage: 3.881 MG, \DAY; MAX DOSE
     Route: 037
     Dates: start: 20101104
  19. CLONIDINE. [Suspect]
     Active Substance: CLONIDINE
     Dosage: 155.27 ?G, \DAY; MAX DOSE
     Route: 037
     Dates: start: 20101104
  20. LIORESAL [Suspect]
     Active Substance: BACLOFEN
     Dosage: 219.82 ?G, \DAY
     Route: 037
  21. DILAUDID [Suspect]
     Active Substance: HYDROMORPHONE HYDROCHLORIDE
     Dosage: 2.299 MG, \DAY
     Route: 037
     Dates: start: 20101104
  22. CLONIDINE. [Suspect]
     Active Substance: CLONIDINE
     Dosage: 159.10 ?G, \DAY; MAX DOSE
     Route: 037
     Dates: start: 20101102, end: 20101104
  23. BACLOFEN. [Suspect]
     Active Substance: BACLOFEN
     Indication: MUSCLE SPASTICITY
     Dosage: 239.91 ?G, \DAY
     Route: 037
     Dates: start: 20101102, end: 20101104

REACTIONS (2)
  - Muscular weakness [Not Recovered/Not Resolved]
  - Hypoaesthesia [Not Recovered/Not Resolved]

NARRATIVE: CASE EVENT DATE: 20101107
